FAERS Safety Report 20693776 (Version 2)
Quarter: 2024Q3

REPORT INFORMATION
  Report Type: Spontaneous
  Country: US (occurrence: US)
  Receive Date: 20220411
  Receipt Date: 20240712
  Transmission Date: 20241017
  Serious: No
  Sender: SANOFI AVENTIS
  Company Number: US-SA-SAC20220406001667

PATIENT
  Sex: Female
  Weight: 48.9 kg

DRUGS (1)
  1. DUPIXENT [Suspect]
     Active Substance: DUPILUMAB
     Indication: Dermatitis atopic
     Dosage: 300 MG, QOW
     Route: 058
     Dates: start: 20211229

REACTIONS (5)
  - Eye inflammation [Not Recovered/Not Resolved]
  - Sneezing [Unknown]
  - Pruritus [Not Recovered/Not Resolved]
  - Ocular hyperaemia [Unknown]
  - Eye irritation [Unknown]
